FAERS Safety Report 13424360 (Version 1)
Quarter: 2017Q2

REPORT INFORMATION
  Report Type: Spontaneous
  Country: US (occurrence: US)
  Receive Date: 20170410
  Receipt Date: 20170410
  Transmission Date: 20170830
  Serious: Yes (Hospitalization, Other)
  Sender: FDA-Public Use
  Company Number: US-DEPOMED, INC.-US-2017DEP000706

PATIENT

DRUGS (4)
  1. NUCYNTA ER [Suspect]
     Active Substance: TAPENTADOL HYDROCHLORIDE
     Dosage: 150 MG, BID
     Route: 048
     Dates: start: 2013, end: 2017
  2. CYMBALTA [Suspect]
     Active Substance: DULOXETINE HYDROCHLORIDE
     Indication: NEUROPATHY PERIPHERAL
     Dosage: LOW DOSE
     Route: 048
     Dates: start: 2016
  3. NUCYNTA ER [Suspect]
     Active Substance: TAPENTADOL HYDROCHLORIDE
     Indication: NEUROPATHY PERIPHERAL
     Dosage: 100 MG, BID
     Route: 048
     Dates: start: 2013, end: 2013
  4. LANSOPRAZOLE. [Concomitant]
     Active Substance: LANSOPRAZOLE
     Indication: GASTROOESOPHAGEAL REFLUX DISEASE
     Dosage: UNK
     Route: 048

REACTIONS (4)
  - Pneumonia [Recovered/Resolved]
  - Pain [Not Recovered/Not Resolved]
  - Adverse event [Recovered/Resolved]
  - Neuropathy peripheral [Not Recovered/Not Resolved]

NARRATIVE: CASE EVENT DATE: 2013
